FAERS Safety Report 4398964-8 (Version None)
Quarter: 2004Q3

REPORT INFORMATION
  Report Type: 
  Country: None (occurrence: None)
  Receive Date: 20040712
  Receipt Date: 20040630
  Transmission Date: 20050211
  Serious: Yes (Life-Threatening, Disabling)
  Sender: FDA-Public Use
  Company Number: 04H-163-0265492-00

PATIENT
  Sex: Female

DRUGS (1)
  1. MAGNESIUM SULFATE [Suspect]
     Indication: PRE-ECLAMPSIA
     Dosage: 2 GM, PER HOUR, INTRAVENOUS
     Route: 042

REACTIONS (6)
  - ACCIDENTAL OVERDOSE [None]
  - APALLIC SYNDROME [None]
  - APNOEA [None]
  - COMA [None]
  - MEDICATION ERROR [None]
  - POST PROCEDURAL COMPLICATION [None]
